FAERS Safety Report 21410015 (Version 1)
Quarter: 2022Q4

REPORT INFORMATION
  Report Type: Other
  Country: US (occurrence: None)
  Receive Date: 20221005
  Receipt Date: 20221005
  Transmission Date: 20230112
  Serious: Yes (Hospitalization)
  Sender: FDA-Public Use
  Company Number: US-ROCHE-3189792

PATIENT
  Age: 32 Year
  Sex: Female

DRUGS (8)
  1. CAPECITABINE [Suspect]
     Active Substance: CAPECITABINE
     Indication: Invasive ductal breast carcinoma
     Route: 048
  2. CARBOPLATIN [Concomitant]
     Active Substance: CARBOPLATIN
  3. PACLITAXEL [Concomitant]
     Active Substance: PACLITAXEL
  4. MIDAZOLAM [Concomitant]
     Active Substance: MIDAZOLAM
  5. PROPOFOL [Concomitant]
     Active Substance: PROPOFOL
  6. FENTANYL [Concomitant]
     Active Substance: FENTANYL
  7. LEVETIRACETAM [Concomitant]
     Active Substance: LEVETIRACETAM
  8. VALPROIC ACID [Concomitant]
     Active Substance: VALPROIC ACID

REACTIONS (2)
  - Arteriospasm coronary [Unknown]
  - Cardiac arrest [Unknown]
